FAERS Safety Report 5882402-X (Version None)
Quarter: 2008Q3

REPORT INFORMATION
  Report Type: 
  Country: None (occurrence: None)
  Receive Date: 20080913
  Receipt Date: 20080801
  Transmission Date: 20090109
  Serious: No
  Sender: FDA-Public Use
  Company Number: US-ABBOTT-08P-163-0468404-00

PATIENT
  Sex: Female
  Weight: 63.56 kg

DRUGS (6)
  1. HUMIRA [Suspect]
     Indication: RHEUMATOID ARTHRITIS
     Route: 058
     Dates: start: 20080601
  2. ACETYLSALICYLIC ACID SRT [Concomitant]
     Indication: HYPERTENSION
     Route: 048
     Dates: start: 20060101
  3. PANTOPRAZOLE [Concomitant]
     Indication: HIATUS HERNIA
     Route: 048
     Dates: start: 20040101
  4. PANTOPRAZOLE [Concomitant]
     Indication: OESOPHAGEAL DISORDER
  5. POTASSIUM CHLORIDE [Concomitant]
     Indication: CARDIAC DISORDER
     Route: 048
     Dates: start: 20000101
  6. ACETYLSALICYLIC ACID SRT [Concomitant]
     Indication: CARDIAC DISORDER
     Route: 048

REACTIONS (1)
  - DIARRHOEA [None]
